FAERS Safety Report 5316161-6 (Version None)
Quarter: 2007Q2

REPORT INFORMATION
  Report Type: 
  Country: None (occurrence: None)
  Receive Date: 20070503
  Receipt Date: 20070424
  Transmission Date: 20071010
  Serious: Yes (Hospitalization)
  Sender: FDA-Public Use
  Company Number: JP-PFIZER INC-2007029305

PATIENT
  Sex: Female
  Weight: 53 kg

DRUGS (1)
  1. AROMASIN [Suspect]
     Indication: BREAST CANCER
     Route: 048
     Dates: start: 20040820, end: 20070410

REACTIONS (4)
  - CONDITION AGGRAVATED [None]
  - FALL [None]
  - HYPOAESTHESIA [None]
  - SPINAL COMPRESSION FRACTURE [None]
